FAERS Safety Report 20373954 (Version 3)
Quarter: 2022Q2

REPORT INFORMATION
  Report Type: Report from Study
  Country: IT (occurrence: IT)
  Receive Date: 20220125
  Receipt Date: 20220505
  Transmission Date: 20220721
  Serious: Yes (Other)
  Sender: FDA-Public Use
  Company Number: IT-UCBSA-2022002268

PATIENT
  Sex: Female

DRUGS (3)
  1. ROTIGOTINE [Suspect]
     Active Substance: ROTIGOTINE
     Indication: Product used for unknown indication
     Dosage: 2 MILLIGRAM, ONCE DAILY (QD)
     Route: 062
  2. ROTIGOTINE [Suspect]
     Active Substance: ROTIGOTINE
     Dosage: 6 MILLIGRAM, ONCE DAILY (QD)
     Route: 062
  3. ROTIGOTINE [Suspect]
     Active Substance: ROTIGOTINE
     Dosage: 8 MILLIGRAM, ONCE DAILY (QD)
     Route: 062

REACTIONS (11)
  - Musculoskeletal pain [Not Recovered/Not Resolved]
  - Neurodegenerative disorder [Unknown]
  - Tremor [Unknown]
  - Skin irritation [Unknown]
  - Application site pruritus [Unknown]
  - Application site erythema [Unknown]
  - Fatigue [Unknown]
  - Tension [Unknown]
  - Stress [Unknown]
  - Therapeutic response shortened [Unknown]
  - Therapy interrupted [Unknown]
